FAERS Safety Report 24271606 (Version 2)
Quarter: 2024Q4

REPORT INFORMATION
  Report Type: Spontaneous
  Country: US (occurrence: US)
  Receive Date: 20240902
  Receipt Date: 20241001
  Transmission Date: 20250115
  Serious: Yes (Hospitalization, Other)
  Sender: CADILA
  Company Number: US-CPL-004551

PATIENT
  Age: 70 Year
  Sex: Male

DRUGS (6)
  1. DONEPEZIL HYDROCHLORIDE [Suspect]
     Active Substance: DONEPEZIL HYDROCHLORIDE
     Indication: Cognitive disorder
     Dosage: 5 MG ONCE A DAY
     Dates: start: 202304, end: 202305
  2. CLOZAPINE [Suspect]
     Active Substance: CLOZAPINE
     Indication: Cognitive disorder
     Dosage: 125 MG AT NIGHT
     Dates: start: 202304, end: 2023
  3. HALOPERIDOL [Concomitant]
     Active Substance: HALOPERIDOL
     Indication: Schizoaffective disorder bipolar type
     Dosage: 7.5 MG 2 TIMES A DAY
     Route: 030
     Dates: start: 202304, end: 2023
  4. LORAZEPAM [Concomitant]
     Active Substance: LORAZEPAM
     Indication: Agitation
     Route: 030
     Dates: start: 202304
  5. DONEPEZIL HYDROCHLORIDE [Suspect]
     Active Substance: DONEPEZIL HYDROCHLORIDE
     Indication: Cognitive disorder
     Dosage: 5 MG DAILY
     Dates: start: 202309
  6. DONEPEZIL HYDROCHLORIDE [Suspect]
     Active Substance: DONEPEZIL HYDROCHLORIDE
     Indication: Cognitive disorder
     Dosage: FROM 5 MG TO 10 MG DAILY
     Dates: start: 202305, end: 2023

REACTIONS (4)
  - Cholinergic syndrome [Recovered/Resolved]
  - Delirium [Recovered/Resolved]
  - Fall [Recovered/Resolved]
  - Altered state of consciousness [Recovered/Resolved]

NARRATIVE: CASE EVENT DATE: 20230101
